FAERS Safety Report 5105687-6 (Version None)
Quarter: 2006Q3

REPORT INFORMATION
  Report Type: 
  Country: None (occurrence: None)
  Receive Date: 20060915
  Receipt Date: 20060418
  Transmission Date: 20061208
  Serious: Yes (Death, Hospitalization)
  Sender: FDA-Public Use
  Company Number: IN-GILEAD-2006-0009473

PATIENT
  Age: 31 Year
  Sex: Male
  Weight: 56.5 kg

DRUGS (9)
  1. EMTRICITABINE [Suspect]
     Indication: HIV INFECTION
     Route: 048
     Dates: start: 20060330, end: 20060418
  2. EMTRICITABINE [Suspect]
     Route: 048
     Dates: start: 20051117, end: 20060314
  3. DIDANOSINE [Suspect]
     Indication: HIV INFECTION
     Route: 048
     Dates: start: 20060330, end: 20060418
  4. DIDANOSINE [Suspect]
     Route: 048
     Dates: start: 20051117, end: 20060314
  5. EFAVIRENZ [Suspect]
     Indication: HIV INFECTION
     Route: 048
     Dates: start: 20060330, end: 20060418
  6. EFAVIRENZ [Suspect]
     Route: 048
     Dates: start: 20051117, end: 20060314
  7. CYCLOPHOSPHAMIDE [Concomitant]
  8. ANTI-TUBERCULOSIS PRESCRIPTION [Concomitant]
     Indication: TUBERCULOSIS
     Dates: start: 20060315
  9. TRIMETHOPRIM + SULFAMETHOXAZOLE [Concomitant]

REACTIONS (5)
  - HEPATITIS [None]
  - HYPOPHOSPHATAEMIA [None]
  - NON-HODGKIN'S LYMPHOMA [None]
  - PANCYTOPENIA [None]
  - PYREXIA [None]
